FAERS Safety Report 19555383 (Version 1)
Quarter: 2021Q3

REPORT INFORMATION
  Report Type: Spontaneous
  Country: US (occurrence: US)
  Receive Date: 20210714
  Receipt Date: 20210714
  Transmission Date: 20211014
  Serious: No
  Sender: FDA-Public Use
  Company Number: US-GLENMARK PHARMACEUTICALS-2020GMK049471

PATIENT

DRUGS (2)
  1. MOMETASONE FUROATE OINTMENT USP, 0.1% [Suspect]
     Active Substance: MOMETASONE FUROATE
     Indication: ECZEMA
     Dosage: UNK UNK, OD (FIRST TUBE)
     Route: 061
  2. MOMETASONE FUROATE OINTMENT USP, 0.1% [Suspect]
     Active Substance: MOMETASONE FUROATE
     Indication: PSORIASIS
     Dosage: UNK UNK, OD (SECOND TUBE)
     Route: 061

REACTIONS (4)
  - Product packaging quantity issue [Unknown]
  - Treatment noncompliance [Unknown]
  - No adverse event [Unknown]
  - Product use in unapproved indication [Unknown]
